FAERS Safety Report 14687817 (Version 1)
Quarter: 2018Q1

REPORT INFORMATION
  Report Type: Spontaneous
  Country: US (occurrence: US)
  Receive Date: 20180328
  Receipt Date: 20180328
  Transmission Date: 20180509
  Serious: No
  Sender: FDA-Public Use
  Company Number: US-ASTRAZENECA-2018SE26740

PATIENT
  Age: 74 Year
  Sex: Female
  Weight: 113.4 kg

DRUGS (1)
  1. SYMBICORT [Suspect]
     Active Substance: BUDESONIDE\FORMOTEROL FUMARATE DIHYDRATE
     Indication: ASTHMA
     Dosage: 160/4.5, 2 INHALATIONS, TWICE DAILY
     Route: 055
     Dates: start: 2016

REACTIONS (7)
  - Dyspnoea [Unknown]
  - Wheezing [Unknown]
  - Medication error [Unknown]
  - Macular degeneration [Unknown]
  - Intentional product misuse [Unknown]
  - Off label use [Unknown]
  - Product use complaint [Unknown]

NARRATIVE: CASE EVENT DATE: 2016
